FAERS Safety Report 7208415-3 (Version None)
Quarter: 2011Q1

REPORT INFORMATION
  Report Type: 
  Country: None (occurrence: None)
  Receive Date: 20110104
  Receipt Date: 20101227
  Transmission Date: 20110831
  Serious: Yes (Hospitalization)
  Sender: FDA-Public Use
  Company Number: TR-ELI_LILLY_AND_COMPANY-TR201012006150

PATIENT

DRUGS (5)
  1. HUMULIN R [Suspect]
     Dosage: 6 U, EACH EVENING
     Route: 064
     Dates: start: 20101101, end: 20101220
  2. HUMULIN R [Suspect]
     Indication: GESTATIONAL DIABETES
     Dosage: 10 U, 2/D
     Route: 064
     Dates: start: 20101101, end: 20101220
  3. FERRO SANOL [Concomitant]
     Indication: MINERAL SUPPLEMENTATION
     Dosage: UNK UNK, DAILY (1/D)
     Route: 064
     Dates: start: 20100801, end: 20101216
  4. HUMULIN N [Suspect]
     Indication: GESTATIONAL DIABETES
     Dosage: 6 U, DAILY (1/D)
     Route: 064
     Dates: start: 20101101, end: 20101220
  5. ELEVIT [Concomitant]
     Indication: VITAMIN SUPPLEMENTATION
     Dosage: UNK UNK, DAILY (1/D)
     Route: 064
     Dates: start: 20100801, end: 20101216

REACTIONS (3)
  - BLOOD GLUCOSE INCREASED [None]
  - DRUG EXPOSURE DURING PREGNANCY [None]
  - SMALL FOR DATES BABY [None]
